FAERS Safety Report 5243768-7 (Version None)
Quarter: 2007Q1

REPORT INFORMATION
  Report Type: 
  Country: None (occurrence: None)
  Receive Date: 20070222
  Receipt Date: 20070209
  Transmission Date: 20070707
  Serious: Yes (Hospitalization, Other)
  Sender: FDA-Public Use
  Company Number: PHBS2007BR02800

PATIENT
  Age: 21 Year
  Sex: Male
  Weight: 90 kg

DRUGS (4)
  1. FORASEQ [Suspect]
     Indication: ASTHMA
     Dates: start: 20051001
  2. XOLAIR [Suspect]
     Indication: ASTHMA
     Dosage: 375 MG, BIW
     Dates: start: 20061206
  3. BEROTEC [Concomitant]
  4. PREDNISONE 50MG TAB [Concomitant]
     Dosage: 60 MG/1 WK/1 MTH

REACTIONS (2)
  - ASTHMA [None]
  - SOMNOLENCE [None]
